FAERS Safety Report 5911645-1 (Version None)
Quarter: 2008Q4

REPORT INFORMATION
  Report Type: 
  Country: None (occurrence: None)
  Receive Date: 20081003
  Receipt Date: 20080918
  Transmission Date: 20090506
  Serious: Yes (Other)
  Sender: FDA-Public Use
  Company Number: 430001N08USA

PATIENT
  Age: 55 Year
  Sex: Female

DRUGS (3)
  1. NOVANTRONE [Suspect]
     Indication: SECONDARY PROGRESSIVE MULTIPLE SCLEROSIS
     Dates: start: 20011015, end: 20020118
  2. GLATIRAMER ACETATE (GLATIRAMER ACETATE) [Concomitant]
  3. METHYLPREDNISOLONE 16MG TAB [Concomitant]

REACTIONS (1)
  - BREAST CANCER FEMALE [None]
